FAERS Safety Report 6810909-7 (Version None)
Quarter: 2010Q2

REPORT INFORMATION
  Report Type: 
  Country: None (occurrence: None)
  Receive Date: 20100630
  Receipt Date: 20090121
  Transmission Date: 20101027
  Serious: No
  Sender: FDA-Public Use
  Company Number: US-PFIZER INC-2008074429

PATIENT
  Sex: Female
  Weight: 62.7 kg

DRUGS (2)
  1. ESTRING [Suspect]
     Indication: HORMONE REPLACEMENT THERAPY
     Dosage: 2 MEQ/L, UNK
  2. CLONAZEPAM [Concomitant]

REACTIONS (3)
  - CYSTITIS [None]
  - DRUG INEFFECTIVE [None]
  - GENITAL DISCOMFORT [None]
